FAERS Safety Report 7248650-1 (Version None)
Quarter: 2011Q1

REPORT INFORMATION
  Report Type: 
  Country: None (occurrence: None)
  Receive Date: 20110128
  Receipt Date: 20110118
  Transmission Date: 20110831
  Serious: Yes (Hospitalization)
  Sender: FDA-Public Use
  Company Number: US-BIOGENIDEC-2009BI014126

PATIENT
  Age: 55 Year
  Sex: Male
  Weight: 124 kg

DRUGS (2)
  1. TYSABRI [Suspect]
     Route: 042
     Dates: start: 20090408, end: 20100615
  2. TYSABRI [Suspect]
     Indication: MULTIPLE SCLEROSIS
     Route: 042
     Dates: start: 20081006, end: 20081006

REACTIONS (33)
  - PRESYNCOPE [None]
  - SKIN DISCOLOURATION [None]
  - FATIGUE [None]
  - MUSCLE ATROPHY [None]
  - HYPOAESTHESIA [None]
  - APHASIA [None]
  - WEIGHT DECREASED [None]
  - DECREASED APPETITE [None]
  - DRUG INEFFECTIVE [None]
  - COGNITIVE DISORDER [None]
  - INFLUENZA LIKE ILLNESS [None]
  - LIMB INJURY [None]
  - VOMITING [None]
  - PNEUMONIA [None]
  - DIZZINESS [None]
  - RASH [None]
  - POLLAKIURIA [None]
  - DYSSTASIA [None]
  - DEHYDRATION [None]
  - STAPHYLOCOCCAL INFECTION [None]
  - SYNCOPE [None]
  - MULTIPLE SCLEROSIS RELAPSE [None]
  - MALAISE [None]
  - FALL [None]
  - MOBILITY DECREASED [None]
  - GAIT DISTURBANCE [None]
  - BALANCE DISORDER [None]
  - READING DISORDER [None]
  - ASTHENIA [None]
  - LOSS OF CONSCIOUSNESS [None]
  - POOR VENOUS ACCESS [None]
  - CONTUSION [None]
  - MEMORY IMPAIRMENT [None]
